FAERS Safety Report 11846561 (Version 2)
Quarter: 2015Q4

REPORT INFORMATION
  Report Type: Spontaneous
  Country: US (occurrence: US)
  Receive Date: 20151217
  Receipt Date: 20151218
  Transmission Date: 20160305
  Serious: Yes (Other)
  Sender: FDA-Public Use
  Company Number: US-BAYER-2015-489987

PATIENT
  Age: 71 Year
  Sex: Male
  Weight: 61.22 kg

DRUGS (2)
  1. DR. SCHOLLS CORN/CALLUS REMOVER [Suspect]
     Active Substance: SALICYLIC ACID
     Indication: SKIN LESION EXCISION
     Dosage: 1-2 DROPS EVERY 2 HOURS, PRN
     Route: 061
     Dates: start: 1980, end: 201511
  2. PENTOHEXAL [Concomitant]
     Indication: COAGULOPATHY
     Dosage: UNK

REACTIONS (7)
  - Poor peripheral circulation [None]
  - Skin discolouration [Not Recovered/Not Resolved]
  - Peripheral swelling [Not Recovered/Not Resolved]
  - Product use issue [None]
  - Peripheral swelling [None]
  - Secretion discharge [Not Recovered/Not Resolved]
  - Klebsiella infection [Not Recovered/Not Resolved]

NARRATIVE: CASE EVENT DATE: 1980
